FAERS Safety Report 23858650 (Version 4)
Quarter: 2024Q2

REPORT INFORMATION
  Report Type: Spontaneous
  Country: AT (occurrence: AT)
  Receive Date: 20240515
  Receipt Date: 20240607
  Transmission Date: 20240716
  Serious: Yes (Other)
  Sender: FDA-Public Use
  Company Number: AT-ROCHE-3558404

PATIENT
  Age: 35 Year
  Sex: Female
  Weight: 62 kg

DRUGS (55)
  1. AROMASIN [Suspect]
     Active Substance: EXEMESTANE
     Indication: HER2 positive breast cancer
     Dosage: 25 MG, 1X/DAY
     Route: 065
     Dates: start: 20200120, end: 20230630
  2. TUKYSA [Suspect]
     Active Substance: TUCATINIB
     Indication: HER2 positive breast cancer
     Dosage: MOST RECENT DOSE PRIOR TO THE EVENT: 8/JAN/2028
     Route: 065
     Dates: start: 20170621
  3. TUKYSA [Suspect]
     Active Substance: TUCATINIB
     Dosage: MOST RECENT DOSE PRIOR TO THE EVENT: 8/JAN/2028
     Route: 065
     Dates: start: 20170712, end: 20171115
  4. TUKYSA [Suspect]
     Active Substance: TUCATINIB
     Dosage: MOST RECENT DOSE PRIOR TO THE EVENT: 8/JAN/2028
     Route: 065
     Dates: start: 20180108, end: 20191127
  5. TUKYSA [Suspect]
     Active Substance: TUCATINIB
     Dosage: 0.5/DAY
     Route: 065
     Dates: start: 20220623, end: 20230612
  6. ARIMIDEX [Suspect]
     Active Substance: ANASTROZOLE
     Dosage: 1 MG, 1X/DAY
     Route: 065
     Dates: start: 20230630
  7. XGEVA [Suspect]
     Active Substance: DENOSUMAB
     Indication: HER2 positive breast cancer
     Dosage: UNK
     Route: 065
     Dates: start: 20170621
  8. XGEVA [Suspect]
     Active Substance: DENOSUMAB
     Dosage: 3.6 MG, ONCE EVERY 4 WK
     Route: 065
     Dates: start: 20180129
  9. ENHERTU [Suspect]
     Active Substance: FAM-TRASTUZUMAB DERUXTECAN-NXKI
     Indication: HER2 positive breast cancer
     Dosage: 360 MG, EVERY 3 WEEKS
     Route: 065
     Dates: start: 20210722, end: 20230703
  10. FEMARA [Suspect]
     Active Substance: LETROZOLE
     Indication: HER2 positive breast cancer
     Dosage: 2.5 MG, 1X/DAY
     Route: 065
     Dates: start: 20180108, end: 20200120
  11. FEMARA [Suspect]
     Active Substance: LETROZOLE
     Dosage: 250 MG, QD (MOST RECENT DOSE PRIOR TO AE 09/JUL/2021)
     Route: 065
     Dates: start: 20201028, end: 20210709
  12. FEMARA [Suspect]
     Active Substance: LETROZOLE
     Dosage: 250 MG, QD (MOST RECENT DOSE PRIOR TO AE 09/JUL/2021)
     Route: 065
     Dates: start: 20230630
  13. TYKERB [Suspect]
     Active Substance: LAPATINIB DITOSYLATE
     Dosage: 250 MG, 1X/DAY
     Route: 065
     Dates: start: 20201028, end: 20210709
  14. TYKERB [Suspect]
     Active Substance: LAPATINIB DITOSYLATE
     Dosage: 250 MG
     Route: 065
     Dates: start: 20230630
  15. CAPECITABINE [Suspect]
     Active Substance: CAPECITABINE
     Indication: HER2 positive breast cancer
     Dosage: 1000 MG; 0.5 MG/DAY
     Route: 048
     Dates: start: 20220623, end: 20230612
  16. HERCEPTIN [Suspect]
     Active Substance: TRASTUZUMAB
     Indication: HER2 positive breast cancer
     Dosage: 8 MG/KG, EVERY 3 WEEKS
     Route: 065
     Dates: start: 20170621, end: 20170621
  17. HERCEPTIN [Suspect]
     Active Substance: TRASTUZUMAB
     Dosage: 6 MG/KG, EVERY 3 WEEKS
     Route: 065
     Dates: start: 20170712, end: 20171115
  18. HERCEPTIN [Suspect]
     Active Substance: TRASTUZUMAB
     Dosage: 6 MG/KG, EVERY 3 WEEKS
     Route: 065
     Dates: start: 20180108, end: 20191127
  19. HERCEPTIN [Suspect]
     Active Substance: TRASTUZUMAB
     Dosage: 600 MG/KG, EVERY 3 WEEKS
     Route: 065
     Dates: start: 20201028, end: 20210709
  20. HERCEPTIN [Suspect]
     Active Substance: TRASTUZUMAB
     Dosage: 600 MG/KG, EVERY 3 WEEKS
     Route: 065
     Dates: start: 20220623
  21. KADCYLA [Suspect]
     Active Substance: ADO-TRASTUZUMAB EMTANSINE
     Indication: HER2 positive breast cancer
     Dosage: 8 MG/KG, ONCE EVERY 3 WK (MOST RECENT DOSE PRIOR TO THE EVENT: 23/JUN/2022)
     Route: 065
     Dates: start: 20170621, end: 20170621
  22. KADCYLA [Suspect]
     Active Substance: ADO-TRASTUZUMAB EMTANSINE
     Dosage: 8 MG/KG, ONCE EVERY 3 WK (MOST RECENT DOSE PRIOR TO THE EVENT: 23/JUN/2022)
     Route: 065
     Dates: start: 20170712, end: 20171115
  23. KADCYLA [Suspect]
     Active Substance: ADO-TRASTUZUMAB EMTANSINE
     Dosage: 8 MG/KG, ONCE EVERY 3 WK (MOST RECENT DOSE PRIOR TO THE EVENT: 23/JUN/2022)
     Route: 065
     Dates: start: 20180108, end: 20190127
  24. KADCYLA [Suspect]
     Active Substance: ADO-TRASTUZUMAB EMTANSINE
     Dosage: 208.8 MG, ONCE EVERY 1 WK (ONCE EVERY 3 WK)
     Route: 065
     Dates: start: 20200120, end: 20200302
  25. KADCYLA [Suspect]
     Active Substance: ADO-TRASTUZUMAB EMTANSINE
     Dosage: 208 MG, ONCE EVERY 1 WK (ONCE EVERY 3 WK); ROA: INTRAVENOUS BOLUS
     Route: 042
     Dates: start: 20200120, end: 20200302
  26. KADCYLA [Suspect]
     Active Substance: ADO-TRASTUZUMAB EMTANSINE
     Dosage: 237 MG, EVERY 3 WEEKS
     Route: 065
     Dates: start: 20200323, end: 20201006
  27. KADCYLA [Suspect]
     Active Substance: ADO-TRASTUZUMAB EMTANSINE
     Dosage: 237 MG, WEEKLY
     Route: 042
     Dates: start: 20200323, end: 20201006
  28. KADCYLA [Suspect]
     Active Substance: ADO-TRASTUZUMAB EMTANSINE
     Dosage: MOST RECENT DOSE PRIOR TO THE EVENT: 23/JUN/2022
     Route: 065
     Dates: start: 20220623
  29. PERJETA [Suspect]
     Active Substance: PERTUZUMAB
     Indication: HER2 positive breast cancer
     Dosage: 840 MG, EVERY 3 WEEKS
     Route: 065
     Dates: start: 20170621, end: 20170621
  30. PERJETA [Suspect]
     Active Substance: PERTUZUMAB
     Dosage: 420 MG, EVERY 3 WEEKS
     Route: 065
     Dates: start: 20180108, end: 20191127
  31. PERJETA [Suspect]
     Active Substance: PERTUZUMAB
     Dosage: 420 MG, EVERY 3 WEEKS
     Route: 065
     Dates: start: 20170712, end: 20171115
  32. TAXOTERE [Suspect]
     Active Substance: DOCETAXEL
     Indication: HER2 positive breast cancer
     Dosage: 75 MG/M2, EVERY 3 WEEKS
     Route: 065
     Dates: start: 20170621, end: 20171115
  33. TAXOTERE [Suspect]
     Active Substance: DOCETAXEL
     Dosage: 25 MG, 1X/DAY
     Route: 042
     Dates: start: 20200120, end: 20230630
  34. GOSERELIN [Suspect]
     Active Substance: GOSERELIN
     Indication: HER2 positive breast cancer
     Dosage: 3.6 MG, ONCE EVERY 4 WK
     Route: 065
     Dates: start: 20180108
  35. GOSERELIN [Suspect]
     Active Substance: GOSERELIN
     Dosage: UNK
     Route: 065
     Dates: start: 20180129
  36. GOSERELIN [Suspect]
     Active Substance: GOSERELIN
     Dosage: UNK
     Route: 065
     Dates: start: 20230508, end: 20230515
  37. LOPERAMIDE [Suspect]
     Active Substance: LOPERAMIDE
     Dosage: UNK
  38. DEXABENE [Concomitant]
     Dosage: UNK
  39. CLOBAZAM [Concomitant]
     Active Substance: CLOBAZAM
     Dosage: UNK
  40. FENTANYL CITRATE [Concomitant]
     Active Substance: FENTANYL CITRATE
     Dosage: UNK
  41. ESOMEPRAZOLE [Concomitant]
     Active Substance: ESOMEPRAZOLE
     Dosage: UNK
  42. NOVALGIN (METAMIZOLE SODIUM) [Concomitant]
     Active Substance: METAMIZOLE SODIUM
     Dosage: UNK
     Dates: start: 20230508, end: 20230515
  43. NOVALGIN (METAMIZOLE SODIUM) [Concomitant]
     Active Substance: METAMIZOLE SODIUM
     Dosage: UNK
     Dates: start: 20180515
  44. APREPITANT [Concomitant]
     Active Substance: APREPITANT
     Dosage: UNK
  45. LEVETIRACETAM [Concomitant]
     Active Substance: LEVETIRACETAM
     Dosage: UNK
  46. CALCIDURAN [ASCORBIC ACID;CALCIUM PHOSPHATE;CITRIC ACID;COLECALCIFEROL [Concomitant]
     Dosage: UNK
  47. KETAMINE HYDROCHLORIDE [Concomitant]
     Active Substance: KETAMINE HYDROCHLORIDE
     Dosage: UNK
     Dates: start: 20230508, end: 20230515
  48. ZOFRAN [Concomitant]
     Active Substance: ONDANSETRON HYDROCHLORIDE
     Dosage: UNK
  49. PROPOFOL [Concomitant]
     Active Substance: PROPOFOL
     Dosage: UNK
  50. DEXAMETHASONE [Concomitant]
     Active Substance: DEXAMETHASONE
     Dosage: UNK
  51. AMOXICILLIN\CLAVULANATE POTASSIUM [Concomitant]
     Active Substance: AMOXICILLIN\CLAVULANATE POTASSIUM
     Dosage: UNK
  52. KETOPROFEN [Concomitant]
     Active Substance: KETOPROFEN
     Dosage: UNK
  53. LIPEGFILGRASTIM [Concomitant]
     Active Substance: LIPEGFILGRASTIM
     Dosage: UNK
  54. SULTAMICILLIN TOSYLATE [Concomitant]
     Active Substance: SULTAMICILLIN TOSYLATE
     Dosage: UNK
  55. DIPHENHYDRAMINE HYDROCHLORIDE [Concomitant]
     Active Substance: DIPHENHYDRAMINE HYDROCHLORIDE
     Dosage: UNK
     Dates: start: 20230508, end: 20230515

REACTIONS (1)
  - Cataract [Recovered/Resolved]

NARRATIVE: CASE EVENT DATE: 20230511
